FAERS Safety Report 9821866 (Version 4)
Quarter: 2015Q1

REPORT INFORMATION
  Report Type: Spontaneous
  Country: US (occurrence: None)
  Receive Date: 20140114
  Receipt Date: 20150112
  Transmission Date: 20150721
  Serious: Yes (Hospitalization, Other)
  Sender: FDA-Public Use
  Company Number: KAD201401-000010

PATIENT
  Age: 22 Year
  Sex: Female
  Weight: 91.62 kg

DRUGS (6)
  1. LITHIUM [Concomitant]
     Active Substance: LITHIUM CARBONATE
  2. SERTRALINE [Concomitant]
     Active Substance: SERTRALINE HYDROCHLORIDE
  3. PEGASYS [Suspect]
     Active Substance: PEGINTERFERON ALFA-2A
     Indication: HEPATITIS C
     Dosage: INJECTION, 180 MCG/WEEK, SUBCUTANEOUS
     Route: 058
     Dates: start: 201304
  4. RIBASPHERE [Suspect]
     Active Substance: RIBAVIRIN
     Indication: HEPATITIS C
     Dosage: TOTAL DAILY DOSE 1200 MG/DAY, THREE 200 MG, TWICE DAILY
     Dates: start: 20130425
  5. CLONAZEPAM (CLONAZEPAM) (CLONAZEPAM) [Concomitant]
     Active Substance: CLONAZEPAM
  6. LAMOTRIGINE (LAMOTRIGINE) [Concomitant]
     Active Substance: LAMOTRIGINE

REACTIONS (3)
  - Maternal exposure during pregnancy [None]
  - Ectopic pregnancy [None]
  - Treatment noncompliance [None]

NARRATIVE: CASE EVENT DATE: 20131230
